FAERS Safety Report 9683916 (Version 1)
Quarter: 2013Q4

REPORT INFORMATION
  Report Type: Spontaneous
  Country: US (occurrence: US)
  Receive Date: 20131112
  Receipt Date: 20131112
  Transmission Date: 20140711
  Serious: No
  Sender: FDA-Public Use
  Company Number: US-MALLINCKRODT-T201304355

PATIENT
  Age: 43 Year
  Sex: Male

DRUGS (4)
  1. FENTANYL TRANSDERMAL SYSTEM [Suspect]
     Indication: PAIN
     Dosage: 50 UG/HR, ONE FTS Q72H
     Route: 062
     Dates: start: 20130809
  2. PERCOCET                           /00446701/ [Concomitant]
     Indication: PAIN
     Dosage: 10/325 MG, Q 6 HRS
     Route: 048
  3. AMBIEN [Concomitant]
     Dosage: 12.5 MG, UNK
  4. MELOXICAM [Concomitant]
     Dosage: 15 MG, UNK

REACTIONS (4)
  - Nightmare [Recovered/Resolved]
  - Hyperhidrosis [Recovered/Resolved]
  - Drug effect increased [Recovered/Resolved]
  - Inappropriate schedule of drug administration [Recovered/Resolved]
